FAERS Safety Report 15912090 (Version 1)
Quarter: 2019Q1

REPORT INFORMATION
  Report Type: Spontaneous
  Country: US (occurrence: US)
  Receive Date: 20190204
  Receipt Date: 20190204
  Transmission Date: 20190417
  Serious: Yes (Other)
  Sender: FDA-Public Use
  Company Number: US-ABBVIE-18K-163-2488058-00

PATIENT
  Sex: Female

DRUGS (1)
  1. HUMIRA [Suspect]
     Active Substance: ADALIMUMAB
     Indication: PRODUCT USED FOR UNKNOWN INDICATION
     Route: 058

REACTIONS (5)
  - Pyelonephritis [Unknown]
  - Postoperative wound infection [Unknown]
  - Enterovirus infection [Unknown]
  - Sepsis [Unknown]
  - Episiotomy [Unknown]

NARRATIVE: CASE EVENT DATE: 20180711
